FAERS Safety Report 7998251-2 (Version None)
Quarter: 2011Q4

REPORT INFORMATION
  Report Type: 
  Country: None (occurrence: None)
  Receive Date: 20111221
  Receipt Date: 20110518
  Transmission Date: 20120403
  Serious: No
  Sender: FDA-Public Use
  Company Number: US-GLAXOSMITHKLINE-A0927829A

PATIENT
  Age: 69 Year
  Sex: Female

DRUGS (4)
  1. LOVAZA [Suspect]
     Indication: BLOOD TRIGLYCERIDES INCREASED
     Dosage: 4G PER DAY
     Route: 048
     Dates: start: 20070101
  2. NEXIUM [Concomitant]
  3. CRESTOR [Concomitant]
  4. PROTONIX [Concomitant]

REACTIONS (1)
  - NAUSEA [None]
